FAERS Safety Report 6779543-1 (Version None)
Quarter: 2010Q2

REPORT INFORMATION
  Report Type: 
  Country: None (occurrence: None)
  Receive Date: 20100618
  Receipt Date: 20100607
  Transmission Date: 20101027
  Serious: Yes (Hospitalization)
  Sender: FDA-Public Use
  Company Number: US-SANOFI-AVENTIS-2010SA021928

PATIENT
  Age: 51 Year
  Sex: Female

DRUGS (2)
  1. APIDRA [Suspect]
     Indication: TYPE 1 DIABETES MELLITUS
     Dosage: PUMP
     Route: 058
     Dates: end: 20100409
  2. APIDRA [Suspect]
     Route: 058
     Dates: start: 20070101

REACTIONS (4)
  - BLOOD GLUCOSE INCREASED [None]
  - COUGH [None]
  - KETOACIDOSIS [None]
  - PRODUCT QUALITY ISSUE [None]
